FAERS Safety Report 19117312 (Version 3)
Quarter: 2021Q3

REPORT INFORMATION
  Report Type: Report from Study
  Country: US (occurrence: US)
  Receive Date: 20210409
  Receipt Date: 20210713
  Transmission Date: 20211014
  Serious: Yes (Other)
  Sender: FDA-Public Use
  Company Number: US-EMD SERONO-9230252

PATIENT
  Age: 54 Year
  Sex: Female

DRUGS (2)
  1. MAVENCLAD [Suspect]
     Active Substance: CLADRIBINE
     Indication: MULTIPLE SCLEROSIS
     Dosage: YEAR ONE THERAPY
     Route: 048
     Dates: start: 20200622
  2. MAVENCLAD [Suspect]
     Active Substance: CLADRIBINE
     Dosage: YEAR TWO THERAPY?PATIENT RECEIVED A CUMULATIVE DOSE OF 290MG OF MAVENCLAD SO FAR.
     Route: 048

REACTIONS (10)
  - Diabetes mellitus [Unknown]
  - Muscular weakness [Unknown]
  - Spondylitis [Unknown]
  - Fall [Not Recovered/Not Resolved]
  - Joint injury [Unknown]
  - Hypoaesthesia [Unknown]
  - Nerve compression [Unknown]
  - Intervertebral disc protrusion [Unknown]
  - Ligament sprain [Unknown]
  - Exostosis [Unknown]

NARRATIVE: CASE EVENT DATE: 20210213
